FAERS Safety Report 4319999-7 (Version None)
Quarter: 2004Q1

REPORT INFORMATION
  Report Type: 
  Country: None (occurrence: None)
  Receive Date: 20040319
  Receipt Date: 20040316
  Transmission Date: 20041129
  Serious: Yes (Hospitalization)
  Sender: FDA-Public Use
  Company Number: WAES 0403USA01500

PATIENT

DRUGS (3)
  1. [THERAPY UNSPECIFIED] [Suspect]
  2. ANTINEOPLASTIC (UNSPECIFIED) [Concomitant]
  3. EMEND [Suspect]
     Indication: PROPHYLAXIS OF NAUSEA AND VOMITING
     Route: 048
     Dates: start: 20030101

REACTIONS (1)
  - DRUG INTERACTION [None]
